FAERS Safety Report 10452568 (Version 6)
Quarter: 2015Q4

REPORT INFORMATION
  Report Type: Spontaneous
  Country: US (occurrence: US)
  Receive Date: 20140915
  Receipt Date: 20151001
  Transmission Date: 20160304
  Serious: Yes (Hospitalization, Other)
  Sender: FDA-Public Use
  Company Number: US-PFIZER INC-2014251072

PATIENT
  Age: 62 Year
  Sex: Female
  Weight: 120 kg

DRUGS (10)
  1. SUTENT [Suspect]
     Active Substance: SUNITINIB MALATE
     Dosage: 50 MG, UNK
     Dates: start: 20140903, end: 20140919
  2. SUTENT [Suspect]
     Active Substance: SUNITINIB MALATE
     Dosage: 50 MG, UNK
     Dates: start: 20140927, end: 20150123
  3. TYLENOL [Concomitant]
     Active Substance: ACETAMINOPHEN
     Dosage: UNK
  4. PRILOSEC [Concomitant]
     Active Substance: OMEPRAZOLE MAGNESIUM
     Dosage: UNK
     Dates: end: 20140919
  5. SUTENT [Suspect]
     Active Substance: SUNITINIB MALATE
     Dosage: 37.5 MG, CYCLIC (2 WEEKS ON AND 1 WEEK OFF )
     Dates: start: 20150206, end: 2015
  6. SUTENT [Suspect]
     Active Substance: SUNITINIB MALATE
     Dosage: 37.5 MG (2 WEEKS ON/1 WEEK OFF)
     Dates: start: 20150330
  7. ECHINACEA [Concomitant]
     Active Substance: ECHINACEA, UNSPECIFIED
     Dosage: UNK
  8. PROTONIX [Concomitant]
     Active Substance: PANTOPRAZOLE SODIUM
     Dosage: UNK
  9. NEXIUM [Concomitant]
     Active Substance: ESOMEPRAZOLE MAGNESIUM
     Dosage: UNK
     Dates: end: 20150206
  10. VITAMIN C [Concomitant]
     Active Substance: ASCORBIC ACID
     Dosage: UNK

REACTIONS (17)
  - Diarrhoea [Unknown]
  - Stomatitis [Unknown]
  - Diverticulitis [Unknown]
  - Weight decreased [Unknown]
  - Alopecia [Unknown]
  - Vomiting [Unknown]
  - Liver function test abnormal [Unknown]
  - Gastrooesophageal reflux disease [Unknown]
  - Dyspepsia [Unknown]
  - Chest pain [Unknown]
  - Dysgeusia [Unknown]
  - Paraesthesia oral [Unknown]
  - Cholelithiasis [Unknown]
  - Back pain [Unknown]
  - Nausea [Unknown]
  - Chest discomfort [Unknown]
  - Gastrointestinal tract irritation [Recovering/Resolving]
